FAERS Safety Report 8413671-X (Version None)
Quarter: 2012Q2

REPORT INFORMATION
  Report Type: 
  Country: None (occurrence: None)
  Receive Date: 20120605
  Receipt Date: 20120530
  Transmission Date: 20120825
  Serious: Yes (Hospitalization, Other)
  Sender: FDA-Public Use
  Company Number: US-AMGEN-USASP2012017201

PATIENT
  Age: 35 Year
  Sex: Female
  Weight: 46.712 kg

DRUGS (8)
  1. VITAMINS           /90003601/ [Concomitant]
     Dosage: UNK UNK, QD
     Route: 048
  2. PREDNISONE [Concomitant]
     Dosage: 5 MG, QD
     Route: 048
  3. SULFASALAZINE [Concomitant]
     Dosage: 5 PILLLS DAILY
     Dates: end: 20120127
  4. CALCIUM [Concomitant]
     Dosage: 2000 UNK, QD
  5. VITAMIN D [Concomitant]
     Dosage: 2000 DAILY
  6. FOLIC ACID [Concomitant]
     Dosage: 800 UNK, QD
  7. ENBREL [Suspect]
     Indication: RHEUMATOID ARTHRITIS
     Dosage: 50 MG, QWK
     Dates: start: 20080101, end: 20110618
  8. PREDNISONE [Concomitant]
     Dosage: 10 MG, QD

REACTIONS (3)
  - PREMATURE LABOUR [None]
  - PREMATURE RUPTURE OF MEMBRANES [None]
  - PREMATURE DELIVERY [None]
